FAERS Safety Report 7610626-X (Version None)
Quarter: 2011Q3

REPORT INFORMATION
  Report Type: 
  Country: None (occurrence: None)
  Receive Date: 20110715
  Receipt Date: 20110705
  Transmission Date: 20111222
  Serious: Yes (Hospitalization, Other)
  Sender: FDA-Public Use
  Company Number: US-BAYER-2011-009066

PATIENT
  Age: 29 Year
  Sex: Female
  Weight: 80 kg

DRUGS (12)
  1. YASMIN [Suspect]
     Indication: CONTRACEPTION
     Dosage: UNK
     Dates: start: 20040101, end: 20051101
  2. NASONEX [Concomitant]
     Indication: MULTIPLE ALLERGIES
     Dosage: UNK
     Dates: start: 20080101
  3. ZOLOFT [Concomitant]
     Indication: ANXIETY
     Dosage: 100 MG, UNK
     Dates: start: 20080801, end: 20100401
  4. ZOLOFT [Concomitant]
     Indication: PANIC ATTACK
  5. CLARITIN [Concomitant]
     Indication: MULTIPLE ALLERGIES
     Dosage: UNK
     Dates: start: 20080101
  6. YAZ [Suspect]
     Indication: CONTRACEPTION
     Dosage: UNK
     Dates: start: 20070901, end: 20090124
  7. AZITHROMYCIN [Concomitant]
     Dosage: UNK
     Dates: start: 20081101
  8. PREDNISONE [Concomitant]
     Dosage: UNK
     Dates: start: 20080201
  9. TORADOL [Concomitant]
     Dosage: UNK
     Dates: start: 20090101
  10. ZOLOFT [Concomitant]
     Indication: DEPRESSION
  11. IBUPROFEN (ADVIL) [Concomitant]
     Dosage: UNK
     Dates: start: 19900101
  12. ZYRTEC DAIICHI [Concomitant]
     Indication: MULTIPLE ALLERGIES
     Dosage: UNK UNK, PRN
     Dates: start: 20080101

REACTIONS (2)
  - MITRAL VALVE INCOMPETENCE [None]
  - PULMONARY EMBOLISM [None]
